FAERS Safety Report 8115381-5 (Version None)
Quarter: 2012Q1

REPORT INFORMATION
  Report Type: 
  Country: None (occurrence: None)
  Receive Date: 20120206
  Receipt Date: 20120206
  Transmission Date: 20120608
  Serious: Yes (Other)
  Sender: FDA-Public Use
  Company Number: None

PATIENT
  Age: 31 Year
  Sex: Male
  Weight: 86.182 kg

DRUGS (1)
  1. PROPECIA [Suspect]
     Indication: ALOPECIA
     Route: 048
     Dates: start: 20050202, end: 20090815

REACTIONS (5)
  - SEXUAL DYSFUNCTION [None]
  - PENILE SIZE REDUCED [None]
  - ERECTILE DYSFUNCTION [None]
  - TESTICULAR ATROPHY [None]
  - CRYING [None]
